FAERS Safety Report 14828962 (Version 1)
Quarter: 2018Q2

REPORT INFORMATION
  Report Type: Spontaneous
  Country: US (occurrence: US)
  Receive Date: 20180430
  Receipt Date: 20180430
  Transmission Date: 20180711
  Serious: Yes (Hospitalization)
  Sender: FDA-Public Use
  Company Number: US-JNJFOC-20180436246

PATIENT
  Age: 69 Year
  Sex: Female
  Weight: 72.1 kg

DRUGS (1)
  1. INVOKANA [Suspect]
     Active Substance: CANAGLIFLOZIN
     Indication: TYPE 2 DIABETES MELLITUS
     Route: 048
     Dates: start: 20170321

REACTIONS (3)
  - Toe amputation [Unknown]
  - Sepsis [Unknown]
  - Gangrene [Unknown]

NARRATIVE: CASE EVENT DATE: 20170503
